FAERS Safety Report 6239045-8 (Version None)
Quarter: 2009Q2

REPORT INFORMATION
  Report Type: 
  Country: None (occurrence: None)
  Receive Date: 20090622
  Receipt Date: 20090615
  Transmission Date: 20091009
  Serious: Yes (Other)
  Sender: FDA-Public Use
  Company Number: PHHY2009BR24196

PATIENT
  Sex: Female
  Weight: 59 kg

DRUGS (5)
  1. FORASEQ [Suspect]
     Indication: FATIGUE
     Dosage: UNK
     Dates: start: 20070601
  2. PURAN T4 [Concomitant]
     Indication: THYROID DISORDER
     Dosage: 1 DF, QD
     Route: 048
     Dates: start: 20050101
  3. CORDAREX [Concomitant]
     Indication: HYPERTENSION
     Dosage: 1 DF, QD
     Route: 048
     Dates: start: 19850101
  4. TOFRANIL [Concomitant]
     Indication: DEPRESSION
     Dosage: 1 DF, QHS
     Route: 048
     Dates: start: 20060101
  5. TOFRANIL [Concomitant]
     Indication: URINARY RETENTION

REACTIONS (1)
  - GALLBLADDER DISORDER [None]
